FAERS Safety Report 10910845 (Version 4)
Quarter: 2016Q4

REPORT INFORMATION
  Report Type: Report from Study
  Country: DE (occurrence: DE)
  Receive Date: 20150312
  Receipt Date: 20161022
  Transmission Date: 20170206
  Serious: Yes (Hospitalization)
  Sender: FDA-Public Use
  Company Number: DE-TEVA-543029GER

PATIENT
  Age: 42 Year
  Sex: Female
  Weight: 55 kg

DRUGS (4)
  1. TRASTUZUMAB [Suspect]
     Active Substance: TRASTUZUMAB
     Indication: BREAST CANCER FEMALE
     Dosage: LAST DOSE PRIOR TO SAE: 04-FEB-2015
     Route: 042
     Dates: start: 20141222
  2. PERTUZUMAB [Suspect]
     Active Substance: PERTUZUMAB
     Indication: BREAST CANCER FEMALE
     Dosage: LAST DOSE PRIOR TO SAE: 04-FEB-2015
     Route: 042
     Dates: start: 20141222
  3. MYOCET [Suspect]
     Active Substance: DOXORUBICIN
     Indication: BREAST CANCER FEMALE
     Dosage: LAST DOSE PRIOR TO SAE: 04-FEB-2015
     Route: 042
     Dates: start: 20141222, end: 20150211
  4. PACLITAXEL. [Suspect]
     Active Substance: PACLITAXEL
     Indication: BREAST CANCER FEMALE
     Dosage: LAST DOSE PRIOR TO SAE: 04-FEB-2015
     Route: 042
     Dates: start: 20141222, end: 20150211

REACTIONS (1)
  - Alveolitis [Recovered/Resolved]

NARRATIVE: CASE EVENT DATE: 20150212
